FAERS Safety Report 9098266 (Version 2)
Quarter: 2013Q1

REPORT INFORMATION
  Report Type: Spontaneous
  Country: LB (occurrence: LB)
  Receive Date: 20130213
  Receipt Date: 20130314
  Transmission Date: 20140127
  Serious: Yes (Hospitalization, Other)
  Sender: FDA-Public Use
  Company Number: LB-B.I. PHARMACEUTICALS,INC./RIDGEFIELD-2013-CS-00167AE

PATIENT
  Age: 42 Year
  Sex: Male

DRUGS (4)
  1. PRADAXA [Suspect]
     Indication: THROMBOSIS PROPHYLAXIS
     Dosage: 220 MG
     Dates: start: 20130130, end: 20130204
  2. PRADAXA [Suspect]
     Indication: MULTIPLE FRACTURES
  3. GERIATRIC PHARMATON [Concomitant]
     Indication: SUPPLEMENTATION THERAPY
     Route: 048
     Dates: start: 20130116
  4. VITAMNIN D [Concomitant]
     Indication: SUPPLEMENTATION THERAPY
     Route: 048

REACTIONS (6)
  - Off label use [Unknown]
  - Pulmonary embolism [Not Recovered/Not Resolved]
  - Tachycardia [Recovered/Resolved]
  - Respiratory depression [Recovered/Resolved]
  - Dyspnoea [Recovered/Resolved]
  - Hypoxia [Recovered/Resolved]
